FAERS Safety Report 25341749 (Version 1)
Quarter: 2025Q2

REPORT INFORMATION
  Report Type: Spontaneous
  Country: CN (occurrence: CN)
  Receive Date: 20250521
  Receipt Date: 20250521
  Transmission Date: 20250717
  Serious: Yes (Hospitalization, Other)
  Sender: NOVARTIS
  Company Number: CN-002147023-NVSC2025CN079209

PATIENT
  Age: 90 Year
  Sex: Male
  Weight: 50.2 kg

DRUGS (1)
  1. SACUBITRIL\VALSARTAN [Suspect]
     Active Substance: SACUBITRIL\VALSARTAN
     Indication: Essential hypertension
     Dosage: 100.000 MG, QD
     Route: 048
     Dates: start: 20250510, end: 20250512

REACTIONS (3)
  - Blood potassium increased [Recovering/Resolving]
  - Melaena [Unknown]
  - Abdominal pain upper [Unknown]

NARRATIVE: CASE EVENT DATE: 20250501
